FAERS Safety Report 15549142 (Version 4)
Quarter: 2018Q4

REPORT INFORMATION
  Report Type: Spontaneous
  Country: CH (occurrence: CH)
  Receive Date: 20181025
  Receipt Date: 20181127
  Transmission Date: 20190205
  Serious: Yes (Other)
  Sender: FDA-Public Use
  Company Number: CH-ABBVIE-18K-151-2531784-00

PATIENT
  Age: 31 Year
  Sex: Female
  Weight: 69.8 kg

DRUGS (8)
  1. MINERVA [Concomitant]
     Active Substance: CYPROTERONE ACETATE\ETHINYL ESTRADIOL
     Indication: PRODUCT USED FOR UNKNOWN INDICATION
     Dosage: FREQUENCY TEXT- EVENING
  2. DAFALGAN [Concomitant]
     Active Substance: ACETAMINOPHEN
     Indication: PRODUCT USED FOR UNKNOWN INDICATION
     Dosage: FREQUENCY TEXT- 3X1 IN RESERVE
  3. HUMIRA [Suspect]
     Active Substance: ADALIMUMAB
     Indication: CROHN^S DISEASE
     Route: 058
     Dates: start: 201709
  4. SPIRICORT [Concomitant]
     Active Substance: PREDNISOLONE
     Indication: CROHN^S DISEASE
     Dates: start: 20180811, end: 20181009
  5. IMUREK [Suspect]
     Active Substance: AZATHIOPRINE
     Indication: PRODUCT USED FOR UNKNOWN INDICATION
     Dosage: HIGH DOSE
     Route: 065
     Dates: start: 201802, end: 201804
  6. HUMIRA [Suspect]
     Active Substance: ADALIMUMAB
     Route: 058
     Dates: start: 201805
  7. HUMIRA [Suspect]
     Active Substance: ADALIMUMAB
     Route: 058
  8. BACTRIM [Suspect]
     Active Substance: SULFAMETHOXAZOLE\TRIMETHOPRIM
     Indication: PRODUCT USED FOR UNKNOWN INDICATION
     Route: 065
     Dates: end: 20180903

REACTIONS (7)
  - Crohn^s disease [Unknown]
  - Vitamin B12 deficiency [Unknown]
  - Peripheral nerve lesion [Unknown]
  - Pancreatitis [Recovered/Resolved]
  - Nerve compression [Unknown]
  - Nausea [Recovered/Resolved]
  - Ulnar neuritis [Unknown]

NARRATIVE: CASE EVENT DATE: 201804
